FAERS Safety Report 5923977-1 (Version None)
Quarter: 2008Q4

REPORT INFORMATION
  Report Type: 
  Country: None (occurrence: None)
  Receive Date: 20081015
  Receipt Date: 20080929
  Transmission Date: 20090506
  Serious: Yes (Hospitalization)
  Sender: FDA-Public Use
  Company Number: 230003K08BRA

PATIENT
  Sex: Male

DRUGS (2)
  1. REBIF [Suspect]
     Dosage: 44 MCG, 2 IN 1 WEEKS
     Dates: start: 20070626
  2. PREDNISONE /00044701/ [Concomitant]

REACTIONS (6)
  - ERYTHEMA [None]
  - INTERNAL INJURY [None]
  - MYALGIA [None]
  - ORAL PUSTULE [None]
  - PURULENCE [None]
  - SWELLING FACE [None]
